FAERS Safety Report 8160341-1 (Version None)
Quarter: 2012Q1

REPORT INFORMATION
  Report Type: 
  Country: None (occurrence: None)
  Receive Date: 20120223
  Receipt Date: 20120111
  Transmission Date: 20120608
  Serious: Yes (Other)
  Sender: FDA-Public Use
  Company Number: AT-PURDUE-DEU-2012-0008497

PATIENT
  Age: 26 Year
  Sex: Male

DRUGS (1)
  1. MORPHINE [Suspect]
     Indication: DRUG WITHDRAWAL MAINTENANCE THERAPY
     Route: 048

REACTIONS (1)
  - DRUG ABUSE [None]
